FAERS Safety Report 7169644-0 (Version None)
Quarter: 2010Q4

REPORT INFORMATION
  Report Type: 
  Country: None (occurrence: None)
  Receive Date: 20101217
  Receipt Date: 20101208
  Transmission Date: 20110411
  Serious: Yes (Other)
  Sender: FDA-Public Use
  Company Number: CA-JNJFOC-20090100574

PATIENT
  Sex: Female

DRUGS (9)
  1. DURAGESIC-100 [Suspect]
     Indication: ANALGESIC THERAPY
     Route: 062
  2. DURAGESIC-100 [Suspect]
     Route: 062
  3. DURAGESIC-100 [Suspect]
     Route: 062
  4. TOPIRAMATE [Suspect]
     Indication: PRODUCT USED FOR UNKNOWN INDICATION
     Route: 048
  5. TOPIRAMATE [Suspect]
     Dosage: FOR THREE DAYS
     Route: 048
  6. GABAPENTIN [Suspect]
     Indication: PRODUCT USED FOR UNKNOWN INDICATION
     Route: 065
  7. NOZINAN [Concomitant]
     Indication: RELAXATION THERAPY
  8. IMIPRAMINE [Concomitant]
  9. DEMEROL [Concomitant]
     Route: 065

REACTIONS (39)
  - ABDOMINAL PAIN [None]
  - ABNORMAL BEHAVIOUR [None]
  - ANXIETY [None]
  - BRAIN INJURY [None]
  - CEREBROVASCULAR ACCIDENT [None]
  - DEPRESSION [None]
  - DRUG ABUSE [None]
  - DYSPHORIA [None]
  - EMOTIONAL DISORDER [None]
  - FEELING COLD [None]
  - HEADACHE [None]
  - INSOMNIA [None]
  - INTERNAL INJURY [None]
  - INTERVERTEBRAL DISC DEGENERATION [None]
  - INTESTINAL FUNCTIONAL DISORDER [None]
  - INTESTINAL PERFORATION [None]
  - ISCHAEMIA [None]
  - LEUKOENCEPHALOPATHY [None]
  - LIFE EXPECTANCY SHORTENED [None]
  - LIVER INJURY [None]
  - MALAISE [None]
  - MUSCLE ATROPHY [None]
  - MYOCARDIAL INFARCTION [None]
  - NAUSEA [None]
  - NEURALGIA [None]
  - NEUROMA [None]
  - NIGHTMARE [None]
  - OVERDOSE [None]
  - POST-TRAUMATIC STRESS DISORDER [None]
  - RECTAL HAEMORRHAGE [None]
  - RENAL FAILURE [None]
  - SPINAL CORD INJURY [None]
  - SUICIDAL IDEATION [None]
  - SUICIDE ATTEMPT [None]
  - TORTICOLLIS [None]
  - TREATMENT NONCOMPLIANCE [None]
  - VAGINAL HAEMORRHAGE [None]
  - WEIGHT DECREASED [None]
  - WITHDRAWAL SYNDROME [None]
